FAERS Safety Report 19659731 (Version 1)
Quarter: 2021Q3

REPORT INFORMATION
  Report Type: Spontaneous
  Country: GB (occurrence: GB)
  Receive Date: 20210804
  Receipt Date: 20210804
  Transmission Date: 20211014
  Serious: Yes (Life-Threatening)
  Sender: FDA-Public Use
  Company Number: GB-BAXTER-2021BAX022615

PATIENT
  Age: 63 Year
  Sex: Male

DRUGS (8)
  1. DUVELISIB [Suspect]
     Active Substance: DUVELISIB
     Indication: ANGIOIMMUNOBLASTIC T-CELL LYMPHOMA STAGE III
     Dosage: DUVELISIB DEC 20 TO JUNE 2021 AT PR THEN PD
     Route: 065
     Dates: start: 202012, end: 202106
  2. CARBOPLATIN. [Suspect]
     Active Substance: CARBOPLATIN
     Indication: ANGIOIMMUNOBLASTIC T-CELL LYMPHOMA STAGE III
     Dosage: ICEX2 ENDED NOV 2020 AT PD (2 CYCLES)
     Route: 065
     Dates: end: 202011
  3. ETOPOSIDE PHOSPHATE [Suspect]
     Active Substance: ETOPOSIDE PHOSPHATE
     Indication: ANGIOIMMUNOBLASTIC T-CELL LYMPHOMA STAGE III
     Dosage: ICE X 2 ENDED NOV 2020 AT PD (2 CYCLES)
     Route: 065
     Dates: end: 202011
  4. VINCRISTINE [Suspect]
     Active Substance: VINCRISTINE
     Indication: ANGIOIMMUNOBLASTIC T-CELL LYMPHOMA STAGE III
     Dosage: 5 CYCLES OF CHOP REGIMEN
     Route: 065
     Dates: end: 202009
  5. IFOSFAMIDE INJECTION 2G [Suspect]
     Active Substance: IFOSFAMIDE
     Indication: ANGIOIMMUNOBLASTIC T-CELL LYMPHOMA STAGE III
     Dosage: ICE X 2 ENDED NOV 2020 AT PD (2 CYCLES)
     Route: 065
     Dates: end: 202011
  6. CYCLOPHOSPHAMIDE INJECTION 1G [Suspect]
     Active Substance: CYCLOPHOSPHAMIDE
     Indication: ANGIOIMMUNOBLASTIC T-CELL LYMPHOMA STAGE III
     Dosage: 5 CYCLES OF CHOP REGIMEN
     Route: 065
     Dates: end: 202009
  7. DOXIL [Suspect]
     Active Substance: DOXORUBICIN HYDROCHLORIDE
     Indication: ANGIOIMMUNOBLASTIC T-CELL LYMPHOMA STAGE III
     Dosage: 5 CYCLES OF CHOP REGIMEN
     Route: 065
     Dates: end: 202009
  8. PREDNISONE. [Suspect]
     Active Substance: PREDNISONE
     Indication: ANGIOIMMUNOBLASTIC T-CELL LYMPHOMA STAGE III
     Dosage: 5 CYCLES OF CHOP REGIMEN
     Route: 065
     Dates: end: 202009

REACTIONS (2)
  - T-cell lymphoma refractory [Unknown]
  - Drug ineffective [Not Recovered/Not Resolved]
